FAERS Safety Report 6139074-9 (Version None)
Quarter: 2009Q1

REPORT INFORMATION
  Report Type: 
  Country: None (occurrence: None)
  Receive Date: 20090324
  Receipt Date: 20090323
  Transmission Date: 20090719
  Serious: Yes (Hospitalization)
  Sender: FDA-Public Use
  Company Number: 2009AL001716

PATIENT
  Age: 60 Year
  Sex: Female
  Weight: 64.4108 kg

DRUGS (1)
  1. DIGOXIN [Suspect]
     Indication: CARDIAC DISORDER
     Dosage: QD, PO
     Route: 048

REACTIONS (5)
  - DIABETES MELLITUS [None]
  - DRY MOUTH [None]
  - MUSCLE SPASMS [None]
  - PALPITATIONS [None]
  - URINARY INCONTINENCE [None]
